FAERS Safety Report 5132861-5 (Version None)
Quarter: 2006Q4

REPORT INFORMATION
  Report Type: 
  Country: None (occurrence: None)
  Receive Date: 20061019
  Receipt Date: 20061019
  Transmission Date: 20070319
  Serious: No
  Sender: FDA-Public Use
  Company Number: None

PATIENT
  Age: 59 Year
  Sex: Male

DRUGS (1)
  1. CROFAB [Suspect]
     Indication: BITE
     Dosage: 6 VIALS ONCE IV
     Route: 042
     Dates: start: 20061001

REACTIONS (1)
  - PHARMACEUTICAL PRODUCT COMPLAINT [None]
